FAERS Safety Report 5748401-3 (Version None)
Quarter: 2008Q2

REPORT INFORMATION
  Report Type: 
  Country: None (occurrence: None)
  Receive Date: 20080523
  Receipt Date: 20080515
  Transmission Date: 20081010
  Serious: Yes (Hospitalization)
  Sender: FDA-Public Use
  Company Number: JP-PFIZER INC-2008036874

PATIENT
  Age: 80 Year
  Sex: Female

DRUGS (1)
  1. SALAZOPYRIN [Suspect]
     Indication: COLITIS
     Dosage: DAILY DOSE:4000MG
     Route: 048

REACTIONS (7)
  - DECREASED APPETITE [None]
  - ENCEPHALOPATHY [None]
  - MENINGITIS ASEPTIC [None]
  - NIGHTMARE [None]
  - ORAL DISORDER [None]
  - RENAL FAILURE ACUTE [None]
  - SYSTEMIC LUPUS ERYTHEMATOSUS [None]
